FAERS Safety Report 4930873-5 (Version None)
Quarter: 2006Q1

REPORT INFORMATION
  Report Type: 
  Country: None (occurrence: None)
  Receive Date: 20060227
  Receipt Date: 20060209
  Transmission Date: 20060701
  Serious: Yes (Other)
  Sender: FDA-Public Use
  Company Number: 2006-0009213

PATIENT

DRUGS (6)
  1. VIREAD [Suspect]
     Dosage: TRANSPLACENTAL
     Route: 064
     Dates: start: 20050819
  2. KALETRA [Concomitant]
  3. COMBIVIR [Concomitant]
  4. MULTIVITAMIN (MULTIVITAMIN /00831701/) [Concomitant]
  5. ASCORBIC ACID [Concomitant]
  6. IRON (IRON) [Concomitant]

REACTIONS (2)
  - DRUG EXPOSURE DURING PREGNANCY [None]
  - SMALL FOR DATES BABY [None]
